FAERS Safety Report 5928298-9 (Version None)
Quarter: 2008Q4

REPORT INFORMATION
  Report Type: 
  Country: None (occurrence: None)
  Receive Date: 20081023
  Receipt Date: 20081013
  Transmission Date: 20090506
  Serious: Yes (Other)
  Sender: FDA-Public Use
  Company Number: US-PURDUE-USA_2002_0003272

PATIENT
  Age: 52 Year
  Sex: Male
  Weight: 112 kg

DRUGS (16)
  1. OXYCONTIN [Suspect]
     Indication: PAIN
     Dosage: 20 MG, Q12H
     Route: 048
     Dates: start: 19990913
  2. TAGAMET                            /00397401/ [Concomitant]
     Indication: DRUG USE FOR UNKNOWN INDICATION
     Dosage: UNK, UNK
     Route: 048
  3. GLUCOPHAGE [Concomitant]
     Indication: DIABETES MELLITUS
     Dosage: UNK, UNK
     Route: 065
  4. REMERON [Concomitant]
     Indication: DRUG USE FOR UNKNOWN INDICATION
     Dosage: 15 MG, NOCTE
     Route: 065
  5. PAXIL [Concomitant]
     Indication: DRUG USE FOR UNKNOWN INDICATION
     Dosage: UNK, UNK
     Route: 065
  6. NORFLEX                            /00039301/ [Concomitant]
     Indication: DRUG USE FOR UNKNOWN INDICATION
     Dosage: UNK, UNK
     Route: 065
  7. SINEQUAN [Concomitant]
     Indication: DRUG USE FOR UNKNOWN INDICATION
     Dosage: UNK, UNK
     Route: 065
  8. PRAVACHOL [Concomitant]
     Indication: DRUG USE FOR UNKNOWN INDICATION
     Dosage: 40 MG, NOCTE
     Route: 065
  9. NEURONTIN [Concomitant]
     Indication: DRUG USE FOR UNKNOWN INDICATION
     Dosage: 300 MG, NOCTE
     Route: 065
  10. MOTRIN [Concomitant]
     Indication: DRUG USE FOR UNKNOWN INDICATION
     Dosage: 800 MG, TID PRN
     Route: 065
  11. MYCOSTATIN                         /00036501/ [Concomitant]
     Indication: CANDIDIASIS
     Dosage: UNK ML, UNK
     Route: 048
  12. ALTACE [Concomitant]
     Indication: DRUG USE FOR UNKNOWN INDICATION
     Dosage: 7.5 MG, QID
     Route: 065
  13. LORCET                             /00607101/ [Concomitant]
     Indication: PAIN
     Dosage: UNK, UNK
     Route: 065
  14. VISTARIL                           /00058403/ [Concomitant]
     Indication: DRUG USE FOR UNKNOWN INDICATION
     Dosage: 50 MG, NOCTE
     Route: 065
  15. ZANAFLEX [Concomitant]
     Indication: DRUG USE FOR UNKNOWN INDICATION
     Dosage: 4 MG, UNK
     Route: 065
  16. GLUCOVANCE [Concomitant]
     Indication: DIABETES MELLITUS
     Dosage: 1 UNK, BID
     Route: 048

REACTIONS (14)
  - AMPUTATION [None]
  - BRADYCARDIA [None]
  - CELLULITIS [None]
  - DRUG ABUSE [None]
  - EXTRASYSTOLES [None]
  - FALL [None]
  - FINGER AMPUTATION [None]
  - HYPERGLYCAEMIA [None]
  - INSOMNIA [None]
  - LIMB INJURY [None]
  - ORAL CANDIDIASIS [None]
  - PHARYNGITIS [None]
  - RASH [None]
  - RASH PRURITIC [None]
